FAERS Safety Report 26012787 (Version 1)
Quarter: 2025Q4

REPORT INFORMATION
  Report Type: Report from Study
  Country: BR (occurrence: None)
  Receive Date: 20251107
  Receipt Date: 20251107
  Transmission Date: 20260118
  Serious: Yes (Death, Hospitalization, Other)
  Sender: UCB
  Company Number: BR-UCBSA-2025061054

PATIENT
  Age: 9 Year
  Weight: 29.8 kg

DRUGS (11)
  1. LACOSAMIDE [Suspect]
     Active Substance: LACOSAMIDE
     Indication: Epilepsy
     Dosage: 12MG/KG, 2X/DAY (BID) VIA GASTROSTOMY TUBE
  2. LEVETIRACETAM [Concomitant]
     Active Substance: LEVETIRACETAM
     Indication: Epilepsy
     Dosage: 400 MILLIGRAM, 2X/DAY (BID)
  3. PHENOBARBITAL [Concomitant]
     Active Substance: PHENOBARBITAL
     Indication: Epilepsy
     Dosage: 62 MILLIGRAM, 2X/DAY (BID)
  4. PIPERACILLIN SODIUM\TAZOBACTAM SODIUM [Concomitant]
     Active Substance: PIPERACILLIN SODIUM\TAZOBACTAM SODIUM
     Indication: Product used for unknown indication
     Dosage: UNK
  5. VANCOMYCIN [Concomitant]
     Active Substance: VANCOMYCIN
     Indication: Product used for unknown indication
     Dosage: UNK
  6. OXACILLIN [Concomitant]
     Active Substance: OXACILLIN SODIUM
     Indication: Product used for unknown indication
     Dosage: 200 MG/KG/DAY
  7. OXACILLIN [Concomitant]
     Active Substance: OXACILLIN SODIUM
     Dosage: 200 MG/KG/DAY EVERY 6 HOURS
  8. CEFTRIAXONE [Concomitant]
     Active Substance: CEFTRIAXONE
     Indication: Product used for unknown indication
     Dosage: 1 GRAM, 2X/DAY (BID)
  9. CLINDAMYCIN [Concomitant]
     Active Substance: CLINDAMYCIN
     Indication: Product used for unknown indication
     Dosage: UNK
  10. MEROPENEM [Concomitant]
     Active Substance: MEROPENEM
     Indication: Product used for unknown indication
     Dosage: 20 MG/KG/DOSE EVERY 8 HOURS
  11. LINEZOLID [Concomitant]
     Active Substance: LINEZOLID
     Indication: Product used for unknown indication
     Dosage: 10 MG/KG/DOSE EVERY 8 HOURS

REACTIONS (18)
  - Postoperative wound infection [Fatal]
  - Septic shock [Fatal]
  - Pancreatitis [Fatal]
  - Renal failure [Fatal]
  - Scoliosis surgery [Recovered/Resolved]
  - Mechanical ventilation [Unknown]
  - Osteomyelitis [Unknown]
  - Metabolic acidosis [Unknown]
  - Anuria [Unknown]
  - Gastrointestinal haemorrhage [Unknown]
  - Haematemesis [Unknown]
  - Cholelithiasis [Unknown]
  - Joint ankylosis [Unknown]
  - Faeces discoloured [Unknown]
  - Gastrooesophageal reflux disease [Unknown]
  - Abdominal discomfort [Unknown]
  - Diarrhoea [Unknown]
  - Product use issue [Unknown]
